FAERS Safety Report 15142064 (Version 1)
Quarter: 2018Q3

REPORT INFORMATION
  Report Type: Spontaneous
  Country: US (occurrence: US)
  Receive Date: 20180713
  Receipt Date: 20180713
  Transmission Date: 20181010
  Serious: No
  Sender: FDA-Public Use
  Company Number: US-ASTELLAS-2017US030377

PATIENT
  Sex: Female

DRUGS (8)
  1. MYRBETRIQ [Suspect]
     Active Substance: MIRABEGRON
     Indication: BLADDER DISORDER
  2. MYRBETRIQ [Suspect]
     Active Substance: MIRABEGRON
     Indication: DYSURIA
  3. MYRBETRIQ [Suspect]
     Active Substance: MIRABEGRON
     Indication: URINARY HESITATION
  4. MYRBETRIQ [Suspect]
     Active Substance: MIRABEGRON
     Indication: URETHRAL STENOSIS
  5. MYRBETRIQ [Suspect]
     Active Substance: MIRABEGRON
     Indication: CYSTITIS INTERSTITIAL
     Route: 048
     Dates: start: 20170722
  6. MYRBETRIQ [Suspect]
     Active Substance: MIRABEGRON
     Indication: URETHRAL STENOSIS
  7. MYRBETRIQ [Suspect]
     Active Substance: MIRABEGRON
     Indication: DYSURIA
  8. MYRBETRIQ [Suspect]
     Active Substance: MIRABEGRON
     Indication: BENIGN PROSTATIC HYPERPLASIA

REACTIONS (1)
  - Off label use [Unknown]
